FAERS Safety Report 23410302 (Version 3)
Quarter: 2024Q1

REPORT INFORMATION
  Report Type: Spontaneous
  Country: JP (occurrence: None)
  Receive Date: 20240117
  Receipt Date: 20240206
  Transmission Date: 20240410
  Serious: Yes (Death)
  Sender: FDA-Public Use
  Company Number: 2024A012101

PATIENT

DRUGS (1)
  1. DAPAGLIFLOZIN [Suspect]
     Active Substance: DAPAGLIFLOZIN
     Indication: Chronic kidney disease
     Dosage: DOSE UNKNOWN
     Route: 048
     Dates: start: 20220111, end: 20220208

REACTIONS (5)
  - Septic shock [Fatal]
  - Hepatic failure [Fatal]
  - Renal failure [Fatal]
  - Urinary tract infection [Fatal]
  - Pneumonia [Fatal]

NARRATIVE: CASE EVENT DATE: 20220402
